FAERS Safety Report 6417065-8 (Version None)
Quarter: 2009Q4

REPORT INFORMATION
  Report Type: 
  Country: None (occurrence: None)
  Receive Date: 20091028
  Receipt Date: 20091022
  Transmission Date: 20100525
  Serious: Yes (Other)
  Sender: FDA-Public Use
  Company Number: DE-BIOGENIDEC-2009BI033905

PATIENT
  Age: 41 Year
  Sex: Female
  Weight: 42 kg

DRUGS (1)
  1. TYSABRI [Suspect]
     Indication: RELAPSING-REMITTING MULTIPLE SCLEROSIS
     Route: 042

REACTIONS (2)
  - ANAPHYLACTIC SHOCK [None]
  - HEADACHE [None]
